FAERS Safety Report 7104792-2 (Version None)
Quarter: 2010Q4

REPORT INFORMATION
  Report Type: 
  Country: None (occurrence: None)
  Receive Date: 20101116
  Receipt Date: 20101101
  Transmission Date: 20110411
  Serious: Yes (Other)
  Sender: FDA-Public Use
  Company Number: TW-JNJFOC-20101104860

PATIENT
  Sex: Male

DRUGS (2)
  1. TOPAMAX [Suspect]
     Indication: WEIGHT DECREASED
     Route: 048
  2. CLOZAPINE [Interacting]
     Indication: ILL-DEFINED DISORDER
     Route: 065

REACTIONS (3)
  - DRUG INTERACTION [None]
  - THROMBOCYTOPENIA [None]
  - WHITE BLOOD CELL COUNT DECREASED [None]
